FAERS Safety Report 8739614 (Version 4)
Quarter: 2013Q4

REPORT INFORMATION
  Report Type: Spontaneous
  Country: DK (occurrence: DK)
  Receive Date: 20120823
  Receipt Date: 20131230
  Transmission Date: 20140711
  Serious: Yes (Other)
  Sender: FDA-Public Use
  Company Number: DK-GLAXOSMITHKLINE-B0824424A

PATIENT
  Age: 61 Year
  Sex: Male

DRUGS (6)
  1. REQUIP DEPOT [Suspect]
     Indication: PARKINSON^S DISEASE
     Dosage: 16MG PER DAY
     Route: 048
     Dates: start: 20110420
  2. ROPINIROLE [Suspect]
     Indication: PARKINSON^S DISEASE
     Route: 048
     Dates: start: 20110420
  3. SIMVASTATIN [Concomitant]
  4. VITAMIN SUPPLEMENT [Concomitant]
  5. FISH OIL [Concomitant]
  6. GARLIC [Concomitant]

REACTIONS (4)
  - Sudden onset of sleep [Recovered/Resolved]
  - Pressure of speech [Recovered/Resolved]
  - Psychomotor hyperactivity [Recovered/Resolved]
  - Weight decreased [Recovered/Resolved]
